FAERS Safety Report 17198945 (Version 3)
Quarter: 2020Q1

REPORT INFORMATION
  Report Type: Report from Study
  Country: BR (occurrence: BR)
  Receive Date: 20191225
  Receipt Date: 20200123
  Transmission Date: 20200409
  Serious: Yes (Other)
  Sender: FDA-Public Use
  Company Number: NVSC2019BR070089

PATIENT
  Age: 48 Year
  Sex: Female
  Weight: 65 kg

DRUGS (9)
  1. COSENTYX [Suspect]
     Active Substance: SECUKINUMAB
     Dosage: UNK
     Route: 058
     Dates: start: 20191108
  2. COSENTYX [Suspect]
     Active Substance: SECUKINUMAB
     Dosage: 300 MG
     Route: 058
     Dates: start: 20190313
  3. PARACETAMOL WITH CODEINE PHOSPHATE [Concomitant]
     Active Substance: ACETAMINOPHEN\CODEINE PHOSPHATE
     Indication: ARTHRALGIA
  4. COSENTYX [Suspect]
     Active Substance: SECUKINUMAB
     Dosage: UNK
     Route: 058
     Dates: start: 20191211
  5. COSENTYX [Suspect]
     Active Substance: SECUKINUMAB
     Indication: PSORIASIS
     Dosage: 300 MG
     Route: 058
     Dates: start: 20190208
  6. PARACETAMOL WITH CODEINE PHOSPHATE [Concomitant]
     Active Substance: ACETAMINOPHEN\CODEINE PHOSPHATE
     Indication: SPINAL PAIN
  7. TRAMADOL HYDROCHLORIDE. [Concomitant]
     Active Substance: TRAMADOL HYDROCHLORIDE
     Indication: BURSITIS
     Dosage: 1 DF, Q12H
     Route: 048
  8. PARACETAMOL WITH CODEINE PHOSPHATE [Concomitant]
     Active Substance: ACETAMINOPHEN\CODEINE PHOSPHATE
     Indication: BURSITIS
     Dosage: UNK DF, QD
     Route: 048
  9. PREGABALIN. [Concomitant]
     Active Substance: PREGABALIN
     Indication: ANXIETY
     Dosage: 1 DF, QD
     Route: 048

REACTIONS (6)
  - Toothache [Recovered/Resolved]
  - Noninfective gingivitis [Recovered/Resolved]
  - Tooth infection [Recovered/Resolved]
  - Tooth disorder [Recovered/Resolved]
  - Tooth loss [Not Recovered/Not Resolved]
  - Gingival abscess [Recovered/Resolved]

NARRATIVE: CASE EVENT DATE: 201907
